FAERS Safety Report 17859952 (Version 1)
Quarter: 2020Q2

REPORT INFORMATION
  Report Type: Spontaneous
  Country: US (occurrence: US)
  Receive Date: 20200604
  Receipt Date: 20200604
  Transmission Date: 20200714
  Serious: Yes (Other)
  Sender: FDA-Public Use
  Company Number: None

PATIENT
  Age: 47 Year
  Sex: Female
  Weight: 86.85 kg

DRUGS (2)
  1. MORPHINE ER [Concomitant]
     Active Substance: MORPHINE
  2. RYBELSUS [Suspect]
     Active Substance: SEMAGLUTIDE
     Route: 048

REACTIONS (4)
  - Drug interaction [None]
  - Pain [None]
  - Sleep disorder [None]
  - Impaired gastric emptying [None]

NARRATIVE: CASE EVENT DATE: 20200603
